FAERS Safety Report 12273187 (Version 2)
Quarter: 2016Q2

REPORT INFORMATION
  Report Type: Other
  Country: FR (occurrence: FR)
  Receive Date: 20160415
  Receipt Date: 20160531
  Transmission Date: 20160815
  Serious: Yes (Hospitalization)
  Sender: FDA-Public Use
  Company Number: FR-SYMPLMED PHARMACEUTICALS-2016SYMPLMED000188

PATIENT

DRUGS (8)
  1. TICAGRELOR [Concomitant]
     Active Substance: TICAGRELOR
     Indication: PRODUCT USED FOR UNKNOWN INDICATION
     Dosage: UNK
     Dates: start: 20150930, end: 20151010
  2. ESIDREX [Suspect]
     Active Substance: HYDROCHLOROTHIAZIDE
     Indication: PRODUCT USED FOR UNKNOWN INDICATION
     Dosage: UNK
     Route: 048
     Dates: start: 20150930
  3. KARDEGIC [Suspect]
     Active Substance: ASPIRIN LYSINE
     Indication: ISCHAEMIC HEART DISEASE PROPHYLAXIS
     Dosage: 1 DF, QD
     Route: 048
  4. TAHOR [Suspect]
     Active Substance: ATORVASTATIN CALCIUM
     Indication: ISCHAEMIC HEART DISEASE PROPHYLAXIS
     Dosage: 1 DF, QD
     Route: 048
  5. ESOMEPRAZOLE EG [Suspect]
     Active Substance: ESOMEPRAZOLE
     Indication: DYSPEPSIA
     Dosage: 1 DF, QD
     Route: 048
  6. COVERAM [Suspect]
     Active Substance: AMLODIPINE\PERINDOPRIL
     Indication: ISCHAEMIC HEART DISEASE PROPHYLAXIS
     Dosage: 1 DF, QD
     Route: 048
     Dates: start: 20150930
  7. PLAVIX [Suspect]
     Active Substance: CLOPIDOGREL BISULFATE
     Indication: ISCHAEMIC HEART DISEASE PROPHYLAXIS
     Dosage: 75 MG, QD
     Route: 048
     Dates: start: 20151010, end: 20151020
  8. DIFFU K [Suspect]
     Active Substance: POTASSIUM CHLORIDE
     Indication: PRODUCT USED FOR UNKNOWN INDICATION
     Dosage: UNKNOWN
     Route: 048

REACTIONS (10)
  - Enterococcal infection [Unknown]
  - Vascular stent thrombosis [Unknown]
  - Pyrexia [Unknown]
  - Jaundice [Unknown]
  - Cholangitis [Unknown]
  - Enterobacter infection [Unknown]
  - Pancreatitis acute [Recovered/Resolved]
  - Cholelithiasis [Unknown]
  - Acute coronary syndrome [Unknown]
  - Abdominal pain upper [Recovered/Resolved]

NARRATIVE: CASE EVENT DATE: 20151010
